FAERS Safety Report 22181800 (Version 7)
Quarter: 2024Q4

REPORT INFORMATION
  Report Type: Spontaneous
  Country: IE (occurrence: IE)
  Receive Date: 20230406
  Receipt Date: 20241128
  Transmission Date: 20250115
  Serious: Yes (Death, Other)
  Sender: MYLAN
  Company Number: IE-MYLANLABS-2023M1020314

PATIENT
  Age: 45 Year
  Sex: Male

DRUGS (1)
  1. CLOZARIL [Suspect]
     Active Substance: CLOZAPINE
     Indication: Schizophrenia
     Dosage: UNK
     Route: 048
     Dates: start: 20010501

REACTIONS (11)
  - Death [Fatal]
  - Thrombocytosis [Not Recovered/Not Resolved]
  - Rouleaux formation [Unknown]
  - Hypochromic anaemia [Unknown]
  - Leukocytosis [Unknown]
  - Neutrophilia [Unknown]
  - Red blood cell count decreased [Not Recovered/Not Resolved]
  - Haematocrit decreased [Not Recovered/Not Resolved]
  - Mean cell haemoglobin decreased [Unknown]
  - Mean cell haemoglobin concentration decreased [Unknown]
  - Differential white blood cell count abnormal [Unknown]

NARRATIVE: CASE EVENT DATE: 20230221
